FAERS Safety Report 8606188-0 (Version None)
Quarter: 2012Q3

REPORT INFORMATION
  Report Type: 
  Country: None (occurrence: None)
  Receive Date: 20120820
  Receipt Date: 20120815
  Transmission Date: 20120928
  Serious: Yes (Disabling)
  Sender: FDA-Public Use
  Company Number: BR-ROCHE-1102598

PATIENT
  Age: 17 Year
  Sex: Female

DRUGS (1)
  1. AVASTIN [Suspect]
     Indication: BRAIN NEOPLASM MALIGNANT

REACTIONS (4)
  - GAIT DISTURBANCE [None]
  - BLINDNESS [None]
  - SPEECH DISORDER [None]
  - NERVOUSNESS [None]
